FAERS Safety Report 5921014-6 (Version None)
Quarter: 2008Q4

REPORT INFORMATION
  Report Type: 
  Country: None (occurrence: None)
  Receive Date: 20081016
  Receipt Date: 20081006
  Transmission Date: 20090506
  Serious: Yes (Other)
  Sender: FDA-Public Use
  Company Number: MY-PFIZER INC-2008032490

PATIENT
  Age: 42 Year
  Sex: Female

DRUGS (4)
  1. MINIPRESS [Suspect]
     Indication: HYPERTENSION
     Dosage: DAILY DOSE:15MG-TEXT:15 MG-FREQ:DAILY
     Route: 048
     Dates: start: 20060513
  2. FRUSEMIDE [Concomitant]
  3. TRIMETAZIDINE [Concomitant]
  4. METHYLDOPA [Concomitant]

REACTIONS (4)
  - DIZZINESS [None]
  - HEADACHE [None]
  - LETHARGY [None]
  - SYNCOPE [None]
